FAERS Safety Report 6077505-3 (Version None)
Quarter: 2009Q1

REPORT INFORMATION
  Report Type: 
  Country: None (occurrence: None)
  Receive Date: 20090213
  Receipt Date: 20090205
  Transmission Date: 20090719
  Serious: Yes (Other)
  Sender: FDA-Public Use
  Company Number: KR-JNJFOC-20090201383

PATIENT
  Age: 72 Year
  Sex: Male

DRUGS (6)
  1. ULTRACET [Suspect]
     Route: 048
  2. ULTRACET [Suspect]
     Indication: BACK PAIN
     Route: 048
  3. VALIUM [Concomitant]
  4. NEURONTIN [Concomitant]
  5. DEPRESSION MEDICATION [Concomitant]
  6. OTHER CONCOMITANT MEDICATIONS [Concomitant]

REACTIONS (5)
  - AGITATION [None]
  - DEPRESSION [None]
  - FEAR [None]
  - OVERDOSE [None]
  - PAIN [None]
